FAERS Safety Report 8499427-0 (Version None)
Quarter: 2012Q3

REPORT INFORMATION
  Report Type: 
  Country: None (occurrence: None)
  Receive Date: 20120710
  Receipt Date: 20120703
  Transmission Date: 20120928
  Serious: Yes (Death)
  Sender: FDA-Public Use
  Company Number: GB-GENZYME-FLUD-1001486

PATIENT

DRUGS (3)
  1. FLUDARA [Suspect]
     Indication: CHRONIC LYMPHOCYTIC LEUKAEMIA
     Dosage: UNK, 8 CYCLE
     Route: 065
     Dates: start: 20090103, end: 20091009
  2. CYCLOPHOSPHAMIDE [Suspect]
     Indication: CHRONIC LYMPHOCYTIC LEUKAEMIA
     Dosage: UNK, 8 CYCLE
     Route: 065
     Dates: start: 20090103, end: 20091009
  3. RITUXIMAB [Concomitant]
     Indication: PRODUCT USED FOR UNKNOWN INDICATION
     Dosage: UNK, 1 CYCLE
     Route: 065
     Dates: start: 20110404, end: 20110404

REACTIONS (1)
  - HISTIOCYTOSIS HAEMATOPHAGIC [None]
